FAERS Safety Report 23283372 (Version 1)
Quarter: 2023Q4

REPORT INFORMATION
  Report Type: Spontaneous
  Country: US (occurrence: US)
  Receive Date: 20231211
  Receipt Date: 20231211
  Transmission Date: 20240110
  Serious: No
  Sender: FDA-Public Use
  Company Number: US-IMMUNOGEN, INC.-US-IMGN-23-00635

PATIENT

DRUGS (2)
  1. ELAHERE [Suspect]
     Active Substance: MIRVETUXIMAB SORAVTANSINE-GYNX
     Indication: Ovarian cancer
     Dosage: 313 MILLIGRAM, 3W
     Route: 042
     Dates: start: 20230922
  2. ELAHERE [Suspect]
     Active Substance: MIRVETUXIMAB SORAVTANSINE-GYNX
     Dosage: 256 MILLIGRAM, 3W
     Route: 042
     Dates: start: 20231020

REACTIONS (2)
  - Diarrhoea [Unknown]
  - Platelet count decreased [Unknown]

NARRATIVE: CASE EVENT DATE: 20230101
